FAERS Safety Report 7299865-8 (Version None)
Quarter: 2011Q1

REPORT INFORMATION
  Report Type: 
  Country: None (occurrence: None)
  Receive Date: 20110217
  Receipt Date: 20110217
  Transmission Date: 20110831
  Serious: Yes (Other)
  Sender: FDA-Public Use
  Company Number: MY-PFIZER INC-2009173783

PATIENT
  Age: 18 Year
  Sex: Male

DRUGS (3)
  1. TAZOCIN [Suspect]
     Indication: BACTERIAL SEPSIS
     Dosage: 18 G/DAY
     Route: 042
     Dates: start: 20080301
  2. MERONEM [Suspect]
     Indication: BACTERIAL SEPSIS
     Dosage: 3 G/DAY
     Route: 042
     Dates: start: 20080301
  3. SULPERAZON [Suspect]
     Indication: BACTERIAL SEPSIS
     Dosage: 6 G/DAY
     Route: 042
     Dates: start: 20080301

REACTIONS (1)
  - ALANINE AMINOTRANSFERASE INCREASED [None]
